FAERS Safety Report 14705765 (Version 1)
Quarter: 2018Q2

REPORT INFORMATION
  Report Type: Spontaneous
  Country: US (occurrence: US)
  Receive Date: 20180402
  Receipt Date: 20180402
  Transmission Date: 20180711
  Serious: Yes (Hospitalization, Other)
  Sender: FDA-Public Use
  Company Number: US-JAZZ-2018-US-004862

PATIENT
  Age: 54 Year
  Sex: Male

DRUGS (3)
  1. CLOZAPINE. [Suspect]
     Active Substance: CLOZAPINE
     Dosage: 250 MG, UNK
     Route: 048
     Dates: start: 2017, end: 2017
  2. CLOZAPINE. [Suspect]
     Active Substance: CLOZAPINE
     Indication: SCHIZOAFFECTIVE DISORDER
     Dosage: 50 MG, UNK
     Route: 048
     Dates: start: 2017, end: 2017
  3. CLOZAPINE. [Suspect]
     Active Substance: CLOZAPINE
     Dosage: 300 MG, UNK
     Route: 048
     Dates: start: 2017, end: 2017

REACTIONS (7)
  - Coeliac disease [Unknown]
  - Dehydration [Unknown]
  - Hypokalaemia [Unknown]
  - Pseudomembranous colitis [Unknown]
  - Condition aggravated [Unknown]
  - Metabolic acidosis [Recovering/Resolving]
  - Renal injury [Unknown]
